FAERS Safety Report 19287182 (Version 2)
Quarter: 2021Q2

REPORT INFORMATION
  Report Type: Report from Study
  Country: PL (occurrence: PL)
  Receive Date: 20210521
  Receipt Date: 20210604
  Transmission Date: 20210717
  Serious: Yes (Hospitalization)
  Sender: FDA-Public Use
  Company Number: PL-BRISTOL-MYERS SQUIBB COMPANY-BMS-2021-049167

PATIENT
  Age: 76 Year
  Sex: Male
  Weight: 87.1 kg

DRUGS (2)
  1. IBRUTINIB [Suspect]
     Active Substance: IBRUTINIB
     Indication: HAEMATOLOGICAL MALIGNANCY
     Dosage: 560 MILLIGRAM, QD
     Route: 048
     Dates: start: 20160623, end: 20210503
  2. NIVOLUMAB [Suspect]
     Active Substance: NIVOLUMAB
     Indication: HAEMATOLOGICAL MALIGNANCY
     Dosage: 258 MILLIGRAM, Q3WK; 1 TIME
     Route: 042
     Dates: start: 20160623, end: 20210415

REACTIONS (1)
  - COVID-19 [Recovered/Resolved]

NARRATIVE: CASE EVENT DATE: 20210504
